FAERS Safety Report 26157632 (Version 1)
Quarter: 2025Q4

REPORT INFORMATION
  Report Type: Report from Study
  Country: US (occurrence: US)
  Receive Date: 20251215
  Receipt Date: 20251215
  Transmission Date: 20260118
  Serious: Yes (Death, Other)
  Sender: AMNEAL
  Company Number: US-AMNEAL PHARMACEUTICALS-2025-AMRX-04797

PATIENT
  Age: 57 Year
  Sex: Male
  Weight: 72.562 kg

DRUGS (1)
  1. CARBIDOPA\LEVODOPA [Suspect]
     Active Substance: CARBIDOPA\LEVODOPA
     Indication: Parkinson^s disease
     Dosage: 52.3/210MG, 3X/DAY
     Route: 048

REACTIONS (2)
  - Myocardial infarction [Fatal]
  - Fall [Unknown]

NARRATIVE: CASE EVENT DATE: 20251101
